FAERS Safety Report 6755925-9 (Version None)
Quarter: 2010Q2

REPORT INFORMATION
  Report Type: 
  Country: None (occurrence: None)
  Receive Date: 20100603
  Receipt Date: 20100603
  Transmission Date: 20101027
  Serious: Yes (Life-Threatening)
  Sender: FDA-Public Use
  Company Number: None

PATIENT
  Age: 60 Year
  Sex: Female
  Weight: 70.3075 kg

DRUGS (2)
  1. FLECTOR [Suspect]
     Indication: ARTHRITIS
     Dosage: ONE THIRD OF A PATCH 1/12 HOURS CUTANEOUS
     Route: 003
     Dates: start: 20100527, end: 20100529
  2. FLECTOR [Suspect]
     Indication: ARTHRITIS
     Dosage: ONE THIRD OF A PATCH 1/12 HOURS CUTANEOUS
     Route: 003
     Dates: start: 20100601, end: 20100601

REACTIONS (2)
  - BLOOD GLUCOSE INCREASED [None]
  - GLYCOSYLATED HAEMOGLOBIN INCREASED [None]
